FAERS Safety Report 19685264 (Version 13)
Quarter: 2025Q4

REPORT INFORMATION
  Report Type: Report from Study
  Country: US (occurrence: None)
  Receive Date: 20210811
  Receipt Date: 20251221
  Transmission Date: 20260118
  Serious: Yes (Death, Life-Threatening, Hospitalization, Other)
  Sender: CHIESI
  Company Number: US-AMRYT PHARMACEUTICALS DAC-AEGR005089

PATIENT
  Age: 41 Year
  Sex: Female
  Weight: 60.3 kg

DRUGS (8)
  1. METRELEPTIN [Suspect]
     Active Substance: METRELEPTIN
     Indication: Acquired generalised lipodystrophy
     Dosage: 5 MILLIGRAM, QD
     Dates: start: 20141231, end: 20210911
  2. IMMUNE GLOBULIN [Concomitant]
     Indication: Immunodeficiency common variable
     Dosage: 50 GRAM, Q3W
  3. INSULIN LISPRO [Concomitant]
     Active Substance: INSULIN LISPRO
     Indication: Diabetes mellitus
     Dosage: 75 INTERNATIONAL UNIT, QD
     Dates: start: 20190302
  4. INSULIN LISPRO [Concomitant]
     Active Substance: INSULIN LISPRO
     Dosage: 75 INTERNATIONAL UNIT, QD
     Dates: start: 20190302
  5. DOXYCYCLINE [Concomitant]
     Active Substance: DOXYCYCLINE
     Indication: Immunodeficiency common variable
     Dosage: 100 MILLIGRAM, BID
     Route: 061
     Dates: start: 20180418
  6. DOXYCYCLINE [Concomitant]
     Active Substance: DOXYCYCLINE
     Dosage: 100 MILLIGRAM, BID
     Route: 061
     Dates: start: 20180418
  7. VITAMINS [Concomitant]
     Active Substance: VITAMINS
     Indication: Supplementation therapy
     Dosage: 1 DOSAGE FORM, QD
     Route: 061
     Dates: start: 2018
  8. LANTUS SOLOSTAR [Concomitant]
     Active Substance: INSULIN GLARGINE
     Indication: Diabetes mellitus
     Dosage: 30 INTERNATIONAL UNIT

REACTIONS (8)
  - Acute kidney injury [Fatal]
  - Aortic valve incompetence [Fatal]
  - Endocarditis [Fatal]
  - Acute respiratory failure [Fatal]
  - Portal hypertension [Fatal]
  - Hospitalisation [Unknown]
  - Endotracheal intubation [Unknown]
  - Palpitations [Recovered/Resolved]

NARRATIVE: CASE EVENT DATE: 20201117
